FAERS Safety Report 13325086 (Version 2)
Quarter: 2017Q1

REPORT INFORMATION
  Report Type: Report from Study
  Country: None (occurrence: CA)
  Receive Date: 20170310
  Receipt Date: 20170322
  Transmission Date: 20170428
  Serious: Yes (Other)
  Sender: FDA-Public Use
  Company Number: CA-ABBVIE-17P-028-1900967-00

PATIENT
  Sex: Male
  Weight: 62 kg

DRUGS (1)
  1. HUMIRA [Suspect]
     Active Substance: ADALIMUMAB
     Indication: CROHN^S DISEASE
     Route: 058
     Dates: start: 20150729

REACTIONS (4)
  - Weight gain poor [Not Recovered/Not Resolved]
  - Crohn^s disease [Not Recovered/Not Resolved]
  - Intestinal obstruction [Unknown]
  - Diarrhoea [Not Recovered/Not Resolved]
